FAERS Safety Report 25516761 (Version 1)
Quarter: 2025Q3

REPORT INFORMATION
  Report Type: Spontaneous
  Country: US (occurrence: US)
  Receive Date: 20250704
  Receipt Date: 20250704
  Transmission Date: 20251021
  Serious: No
  Sender: RADIUS PHARM
  Company Number: US-RADIUS HEALTH INC.-US-RADIUS-25046261

PATIENT
  Sex: Female

DRUGS (7)
  1. TYMLOS [Suspect]
     Active Substance: ABALOPARATIDE
     Indication: Product used for unknown indication
     Dosage: 80MCG UNDER THE SKIN EVERY DAY
     Route: 058
     Dates: start: 20250211
  2. ASPIRIN [Concomitant]
     Active Substance: ASPIRIN
     Indication: Product used for unknown indication
  3. VITAMIN B COMPLEX [Concomitant]
     Active Substance: CYANOCOBALAMIN\DEXPANTHENOL\NIACINAMIDE\PYRIDOXINE HYDROCHLORIDE\RIBOFLAVIN 5^-PHOSPHATE SODIUM\THIA
     Indication: Product used for unknown indication
  4. CALCIUM CITRATE [Concomitant]
     Active Substance: CALCIUM CITRATE
     Indication: Product used for unknown indication
  5. MAGNESIUM [Concomitant]
     Active Substance: MAGNESIUM
     Indication: Product used for unknown indication
  6. VITAMIN D3 [Concomitant]
     Active Substance: CHOLECALCIFEROL
     Indication: Product used for unknown indication
  7. CALCIUM\VITAMIN D [Concomitant]
     Active Substance: CALCIUM\VITAMIN D
     Indication: Product used for unknown indication

REACTIONS (4)
  - Tremor [Not Recovered/Not Resolved]
  - Product dose omission issue [Unknown]
  - Incorrect dose administered [Unknown]
  - Device difficult to use [Unknown]
